FAERS Safety Report 10058442 (Version 1)
Quarter: 2014Q2

REPORT INFORMATION
  Report Type: Spontaneous
  Country: US (occurrence: US)
  Receive Date: 20140404
  Receipt Date: 20140404
  Transmission Date: 20141212
  Serious: No
  Sender: FDA-Public Use
  Company Number: US-B.I. PHARMACEUTICALS,INC./RIDGEFIELD-2014-BI-12971BP

PATIENT
  Age: 71 Year
  Sex: Female
  Weight: 68 kg

DRUGS (15)
  1. TRADJENTA [Suspect]
     Indication: DIABETES MELLITUS
     Dosage: 5 MG
     Route: 048
     Dates: start: 201403
  2. LYRICA [Concomitant]
     Indication: FIBROMYALGIA
     Dosage: 40 MG
     Route: 048
  3. VITAMIN  D [Concomitant]
     Route: 048
  4. CYMBALTA [Concomitant]
     Indication: FIBROMYALGIA
     Dosage: 60 MG
     Route: 048
  5. ALLOPURINOL [Concomitant]
     Indication: GOUT
     Dosage: 100 MG
     Route: 048
  6. CRESTOR [Concomitant]
     Indication: BLOOD CHOLESTEROL INCREASED
     Dosage: 20 MG
     Route: 048
  7. BENAZEPRIL [Concomitant]
     Indication: HYPERTENSION
     Dosage: 20 MG
     Route: 048
  8. AMLODIPINE [Concomitant]
     Indication: HYPERTENSION
     Dosage: 10 MG
     Route: 048
  9. THEO-24 ER [Concomitant]
     Indication: CHRONIC OBSTRUCTIVE PULMONARY DISEASE
     Dosage: 100 MG
     Route: 048
  10. ADVAIR [Concomitant]
     Indication: CHRONIC OBSTRUCTIVE PULMONARY DISEASE
     Dosage: FORMULATION: (INHALATION AEROSOL) STRENGTH: 1 INHALATION; DAILY DOSE: 2 INHALATIONS
     Route: 048
  11. AMBIEN [Concomitant]
     Indication: SLEEP DISORDER
     Dosage: 10 MG
     Route: 048
  12. XANAX [Concomitant]
     Indication: SLEEP DISORDER
     Dosage: 2 MG
     Route: 048
  13. FENTANYL TRANSDERMAL PATCH [Concomitant]
     Indication: PAIN
     Dosage: FORMULATION:PATCH
     Route: 050
  14. OXYCODONE [Concomitant]
     Indication: PAIN
     Route: 048
  15. SYMBICORT [Concomitant]
     Indication: CHRONIC OBSTRUCTIVE PULMONARY DISEASE
     Dosage: FORMULATION:INHALATION AEROSOL,  DOSE PER APPLICATION: 80 MCG / 4.5 MCG;
     Route: 055

REACTIONS (2)
  - Chronic obstructive pulmonary disease [Recovered/Resolved]
  - Oesophageal candidiasis [Not Recovered/Not Resolved]
